FAERS Safety Report 9139252 (Version 1)
Quarter: 2013Q1

REPORT INFORMATION
  Report Type: Spontaneous
  Country: BR (occurrence: BR)
  Receive Date: 20130305
  Receipt Date: 20130305
  Transmission Date: 20140127
  Serious: Yes (Life-Threatening, Hospitalization, Other)
  Sender: FDA-Public Use
  Company Number: PHHY2012BR085170

PATIENT
  Age: 90 Year
  Sex: Female

DRUGS (9)
  1. FORASEQ [Suspect]
     Indication: ALLERGIC BRONCHITIS
     Dosage: 1 DF, 2 OR 3 TIMES A DAILY
  2. FORASEQ [Suspect]
     Indication: ASTHMA
  3. LESCOL [Suspect]
     Indication: CAROTIDYNIA
     Dosage: 1 DF, QD
     Route: 048
  4. HYDERGINE [Suspect]
     Indication: MEMORY IMPAIRMENT
     Dosage: 1 DF, QD
  5. HYDERGINE [Suspect]
     Dosage: UNK
  6. HYDERGINE [Suspect]
     Indication: MEMORY IMPAIRMENT
     Dosage: 1 DF, QD
     Route: 048
  7. HYDERGINE [Suspect]
     Dosage: 2 DF
     Route: 048
  8. ANCORON [Concomitant]
     Indication: HEART RATE IRREGULAR
     Dosage: UNK
  9. DICETEL [Concomitant]
     Indication: MUSCLE SPASMS
     Dosage: 1 DF, DAILY

REACTIONS (10)
  - Terminal state [Recovering/Resolving]
  - Urinary tract infection [Recovered/Resolved]
  - Pyrexia [Unknown]
  - Malaise [Recovered/Resolved]
  - Bronchospasm [Recovering/Resolving]
  - Head discomfort [Recovered/Resolved]
  - Asthenopia [Recovered/Resolved]
  - Deafness [Not Recovered/Not Resolved]
  - Fatigue [Recovering/Resolving]
  - Dyspnoea [Recovering/Resolving]
